FAERS Safety Report 6732346-6 (Version None)
Quarter: 2010Q2

REPORT INFORMATION
  Report Type: 
  Country: None (occurrence: None)
  Receive Date: 20100519
  Receipt Date: 20100507
  Transmission Date: 20101027
  Serious: Yes (Other)
  Sender: FDA-Public Use
  Company Number: US-ROCHE-686978

PATIENT
  Sex: Female
  Weight: 89.4 kg

DRUGS (11)
  1. PEGASYS [Suspect]
     Indication: HEPATITIS C
     Dosage: DOSE: 180 MCG/0.5 ML
     Route: 058
     Dates: start: 20100108, end: 20100209
  2. COPEGUS [Suspect]
     Indication: HEPATITIS C
     Route: 048
     Dates: start: 20100108, end: 20100201
  3. PHENERGAN [Concomitant]
     Indication: NAUSEA
     Dosage: FREQUENCY: EVERY 4-6 HOURS PRN
     Route: 048
     Dates: start: 20100209
  4. ULTRAM [Concomitant]
     Indication: PAIN
     Dosage: FREQUENCY: EVERY 4-6 HOURS PRN
     Route: 048
     Dates: start: 20100209
  5. ACTONEL [Concomitant]
     Indication: OSTEOPOROSIS
     Route: 048
     Dates: start: 20100209
  6. SKELAXIN [Concomitant]
     Dosage: PRN
     Route: 048
     Dates: start: 20100209
  7. PROTONIX [Concomitant]
     Route: 048
     Dates: start: 20100209
  8. ZOLOFT [Concomitant]
     Indication: ANXIETY
     Route: 048
     Dates: start: 20100209
  9. CITRACAL [Concomitant]
     Route: 048
     Dates: end: 20100209
  10. CHANTIX [Concomitant]
     Route: 048
     Dates: end: 20100209
  11. MILK THISTLE [Concomitant]
     Route: 048

REACTIONS (6)
  - CHOLELITHIASIS [None]
  - FEELING ABNORMAL [None]
  - HEADACHE [None]
  - ILL-DEFINED DISORDER [None]
  - NAUSEA [None]
  - PANCREATITIS [None]
